FAERS Safety Report 22042316 (Version 5)
Quarter: 2023Q2

REPORT INFORMATION
  Report Type: Report from Study
  Country: BR (occurrence: BR)
  Receive Date: 20230227
  Receipt Date: 20230524
  Transmission Date: 20230721
  Serious: Yes (Death, Hospitalization, Other)
  Sender: FDA-Public Use
  Company Number: BR-JNJFOC-20230229390

PATIENT
  Age: 59 Year
  Sex: Male
  Weight: 77.15 kg

DRUGS (10)
  1. TECLISTAMAB [Suspect]
     Active Substance: TECLISTAMAB
     Indication: Plasma cell myeloma
     Dosage: FIRST DOSE ESCALATION
     Route: 058
     Dates: start: 20230116
  2. TECLISTAMAB [Suspect]
     Active Substance: TECLISTAMAB
     Dosage: SECOND DOSE ESCALATION
     Route: 058
     Dates: start: 20230118
  3. TECLISTAMAB [Suspect]
     Active Substance: TECLISTAMAB
     Dosage: FIRST DOSE OF TREATMENT
     Route: 058
     Dates: start: 20230120, end: 20230127
  4. TECLISTAMAB [Suspect]
     Active Substance: TECLISTAMAB
     Route: 058
     Dates: end: 20230216
  5. DEXAMETHASONE [Concomitant]
     Active Substance: DEXAMETHASONE
  6. VANCOMYCIN [Concomitant]
     Active Substance: VANCOMYCIN
     Indication: Bacterial infection
     Route: 048
     Dates: start: 20230209
  7. MEROPENEM [Concomitant]
     Active Substance: MEROPENEM
     Indication: Bacterial infection
     Route: 065
     Dates: start: 20230209
  8. URSODIOL [Concomitant]
     Active Substance: URSODIOL
  9. LACTULOSE [Concomitant]
     Active Substance: LACTULOSE
  10. XIFAXAN [Concomitant]
     Active Substance: RIFAXIMIN

REACTIONS (4)
  - Escherichia sepsis [Fatal]
  - Cytokine release syndrome [Not Recovered/Not Resolved]
  - Immune effector cell-associated neurotoxicity syndrome [Not Recovered/Not Resolved]
  - Plasma cell myeloma [Not Recovered/Not Resolved]

NARRATIVE: CASE EVENT DATE: 20230203
